FAERS Safety Report 26113890 (Version 3)
Quarter: 2025Q4

REPORT INFORMATION
  Report Type: Spontaneous
  Country: CL (occurrence: CL)
  Receive Date: 20251202
  Receipt Date: 20251222
  Transmission Date: 20260118
  Serious: Yes (Hospitalization, Other)
  Sender: NOVO NORDISK
  Company Number: CL-NOVOPROD-1575398

PATIENT
  Age: 30 Year
  Sex: Female
  Weight: 74 kg

DRUGS (8)
  1. RYBELSUS [Suspect]
     Active Substance: SEMAGLUTIDE
     Indication: Obesity
     Dosage: 14 MG, QW
     Route: 048
     Dates: start: 202402, end: 20250804
  2. DESOGESTREL\ETHINYL ESTRADIOL [Concomitant]
     Active Substance: DESOGESTREL\ETHINYL ESTRADIOL
     Indication: Oral contraception
     Dosage: UNK,QD
     Route: 048
     Dates: start: 2021
  3. ESCITALOPRAM [Concomitant]
     Active Substance: ESCITALOPRAM OXALATE
     Indication: Anxiety
     Dosage: 1/2 TABLET IN THE MORNING
     Route: 048
     Dates: start: 202401, end: 202408
  4. CALCIUM CITRATE\CHOLECALCIFEROL [Concomitant]
     Active Substance: CALCIUM CITRATE\CHOLECALCIFEROL
     Indication: Vitamin D decreased
     Dosage: NOT SPECIFIED
     Route: 048
     Dates: start: 202401
  5. CALCIFEDIOL [Concomitant]
     Active Substance: CALCIFEDIOL
     Indication: Vitamin D decreased
     Dosage: NOT SPECIFIED
     Route: 048
     Dates: start: 202401
  6. VITAMIN B COMPLEX [Concomitant]
     Active Substance: CYANOCOBALAMIN\DEXPANTHENOL\NIACINAMIDE\PYRIDOXINE HYDROCHLORIDE\RIBOFLAVIN 5^-PHOSPHATE SODIUM\THIA
     Indication: Vitamin supplementation
     Dosage: UNK
     Route: 048
     Dates: start: 202401
  7. RYBELSUS [Suspect]
     Active Substance: SEMAGLUTIDE
     Indication: Obesity
     Dosage: 3 MG, QW
     Route: 048
     Dates: start: 202401, end: 202402
  8. SULFAMETHOXAZOLE\TRIMETHOPRIM [Concomitant]
     Active Substance: SULFAMETHOXAZOLE\TRIMETHOPRIM
     Indication: Product used for unknown indication
     Dosage: UNK

REACTIONS (14)
  - Lymphopenia [Not Recovered/Not Resolved]
  - Herpes zoster [Recovered/Resolved]
  - CD4 lymphocytes decreased [Not Recovered/Not Resolved]
  - Breast mass [Not Recovered/Not Resolved]
  - Pyelonephritis acute [Unknown]
  - Laryngitis [Unknown]
  - Weight increased [Recovered/Resolved]
  - Nasopharyngitis [Unknown]
  - Stress fracture [Unknown]
  - Allergic respiratory disease [Unknown]
  - Dermatitis atopic [Unknown]
  - Rash [Unknown]
  - Off label use [Recovered/Resolved]
  - Product use issue [Unknown]

NARRATIVE: CASE EVENT DATE: 20240101
